FAERS Safety Report 9038532 (Version 1)
Quarter: 2013Q1

REPORT INFORMATION
  Report Type: Report from Study
  Country: US (occurrence: US)
  Receive Date: 20130129
  Receipt Date: 20130129
  Transmission Date: 20140127
  Serious: No
  Sender: FDA-Public Use
  Company Number: US-ABBOTT-12P-163-0935319-00

PATIENT
  Age: 77 Year
  Sex: Male

DRUGS (6)
  1. HUMIRA 40 MG/0.8 ML PEN [Suspect]
     Indication: PSORIATIC ARTHROPATHY
     Dates: start: 201110
  2. LEVOXYL [Concomitant]
     Indication: RENAL DISORDER
     Dosage: 1 DAILY
     Route: 048
  3. DETROL [Concomitant]
     Indication: BLADDER DISORDER
     Dosage: 2 TABLETS DAILY
     Route: 048
  4. CELEBREX [Concomitant]
     Indication: PAIN
     Dosage: 2 TABLETS DAILY
  5. CLARINEX [Concomitant]
     Indication: HYPERSENSITIVITY
     Dosage: 1 DAILY
     Route: 048
  6. GABAPENTIN [Concomitant]
     Indication: MUSCLE SPASMS
     Dosage: 3 TABLETS DAILY
     Route: 048

REACTIONS (4)
  - Onychomadesis [Not Recovered/Not Resolved]
  - Nail discolouration [Not Recovered/Not Resolved]
  - Drug ineffective [Not Recovered/Not Resolved]
  - Gynaecomastia [Not Recovered/Not Resolved]
